FAERS Safety Report 19820361 (Version 2)
Quarter: 2021Q3

REPORT INFORMATION
  Report Type: Spontaneous
  Country: US (occurrence: US)
  Receive Date: 20210913
  Receipt Date: 20210925
  Transmission Date: 20211014
  Serious: Yes (Other)
  Sender: FDA-Public Use
  Company Number: US-009507513-2109USA002003

PATIENT
  Age: 66 Year
  Sex: Female
  Weight: 63.49 kg

DRUGS (2)
  1. BELSOMRA [Suspect]
     Active Substance: SUVOREXANT
     Indication: INSOMNIA
     Dosage: 10 MG (ONE TABLET AT NIGHT)
     Route: 048
     Dates: start: 20210902, end: 20210904
  2. BUPROPION. [Concomitant]
     Active Substance: BUPROPION
     Indication: DEPRESSION
     Dosage: 300 MILLIGRAM, QD
     Route: 048
     Dates: start: 20200804

REACTIONS (4)
  - Abnormal dreams [Recovered/Resolved]
  - Medication error [Unknown]
  - Sleep terror [Recovered/Resolved]
  - Nightmare [Recovered/Resolved]

NARRATIVE: CASE EVENT DATE: 20210902
